FAERS Safety Report 12751045 (Version 4)
Quarter: 2017Q3

REPORT INFORMATION
  Report Type: Spontaneous
  Country: US (occurrence: US)
  Receive Date: 20160915
  Receipt Date: 20170718
  Transmission Date: 20171127
  Serious: Yes (Hospitalization)
  Sender: FDA-Public Use
  Company Number: US-ASTELLAS-2016US001954

PATIENT
  Age: 57 Year
  Sex: Male

DRUGS (3)
  1. XTANDI [Suspect]
     Active Substance: ENZALUTAMIDE
     Indication: PROSTATE CANCER
     Route: 048
     Dates: start: 201510, end: 201608
  2. LUPRON [Concomitant]
     Active Substance: LEUPROLIDE ACETATE
     Indication: PRODUCT USED FOR UNKNOWN INDICATION
     Route: 065
  3. XTANDI [Suspect]
     Active Substance: ENZALUTAMIDE
     Route: 048
     Dates: start: 20170331

REACTIONS (5)
  - Abdominal distension [Unknown]
  - Retroperitoneal lymphadenopathy [Not Recovered/Not Resolved]
  - Weight increased [Unknown]
  - Treatment noncompliance [Unknown]
  - Hot flush [Unknown]

NARRATIVE: CASE EVENT DATE: 20160308
